FAERS Safety Report 16850028 (Version 1)
Quarter: 2019Q4

REPORT INFORMATION
  Report Type: Spontaneous
  Country: US (occurrence: US)
  Receive Date: 20190925
  Receipt Date: 20190925
  Transmission Date: 20200122
  Serious: No
  Sender: FDA-Public Use
  Company Number: None

PATIENT
  Sex: Male
  Weight: 86.6 kg

DRUGS (2)
  1. LIDOCAINE 1% W/ EPINEPHRINE (1:100,000) [Suspect]
     Active Substance: EPINEPHRINE\LIDOCAINE
  2. LIDOCAINE 1% W/ EPINEPHRINE (1:100,000) [Concomitant]
     Active Substance: EPINEPHRINE\LIDOCAINE
     Dates: start: 20190925, end: 20190925

REACTIONS (2)
  - Heart rate decreased [None]
  - Blood pressure increased [None]

NARRATIVE: CASE EVENT DATE: 20190925
